FAERS Safety Report 5575839-X (Version None)
Quarter: 2007Q4

REPORT INFORMATION
  Report Type: 
  Country: None (occurrence: None)
  Receive Date: 20071130
  Receipt Date: 20070730
  Transmission Date: 20080405
  Serious: No
  Sender: FDA-Public Use
  Company Number: US200708000246

PATIENT
  Age: 63 Year
  Sex: Female
  Weight: 144.7 kg

DRUGS (9)
  1. BYETTA [Suspect]
     Indication: TYPE 2 DIABETES MELLITUS
     Dosage: 5 UG, 2/D, SUBCUTANEOUS ; 10 UG, 2/D, SUBCUTANEOUS
     Route: 058
     Dates: start: 20060701, end: 20061001
  2. BYETTA [Suspect]
     Indication: TYPE 2 DIABETES MELLITUS
     Dosage: 5 UG, 2/D, SUBCUTANEOUS ; 10 UG, 2/D, SUBCUTANEOUS
     Route: 058
     Dates: start: 20061001
  3. GLIMEPIRIDE [Concomitant]
  4. COUMADIN [Concomitant]
  5. FAMOTIDINE [Concomitant]
  6. GABAPENTINE (GABAPENTIN) [Concomitant]
  7. ZOCOR [Concomitant]
  8. TOPROL-XL [Concomitant]
  9. ALTACE [Concomitant]

REACTIONS (5)
  - ARTHROPOD BITE [None]
  - INFLAMMATION [None]
  - JOINT SWELLING [None]
  - MALAISE [None]
  - PAIN IN EXTREMITY [None]
